FAERS Safety Report 5798983-0 (Version None)
Quarter: 2008Q3

REPORT INFORMATION
  Report Type: 
  Country: None (occurrence: None)
  Receive Date: 20080702
  Receipt Date: 20080625
  Transmission Date: 20090109
  Serious: Yes (Life-Threatening, Hospitalization)
  Sender: FDA-Public Use
  Company Number: SZ-PFIZER INC-2007039437

PATIENT
  Sex: Male
  Weight: 78 kg

DRUGS (14)
  1. IRINOTECAN HCL [Suspect]
     Indication: SMALL CELL LUNG CANCER STAGE UNSPECIFIED
     Route: 042
  2. CISPLATIN [Suspect]
     Indication: SMALL CELL LUNG CANCER STAGE UNSPECIFIED
     Route: 042
  3. FOSICOMP [Concomitant]
     Route: 048
  4. FORTECORTIN [Concomitant]
     Route: 048
  5. NEXIUM [Concomitant]
     Route: 048
     Dates: start: 20070514, end: 20070514
  6. NEXIUM [Concomitant]
     Route: 042
     Dates: start: 20070515, end: 20070517
  7. NEXIUM [Concomitant]
     Route: 048
  8. HALDOL [Concomitant]
     Route: 048
     Dates: start: 20070513, end: 20070514
  9. HALDOL [Concomitant]
     Route: 042
     Dates: start: 20070514, end: 20070514
  10. HALDOL [Concomitant]
     Route: 048
     Dates: start: 20070518
  11. CORDARONE [Concomitant]
     Route: 042
     Dates: start: 20070515, end: 20070517
  12. CORDARONE [Concomitant]
     Route: 048
  13. ATROVENT [Concomitant]
     Route: 055
  14. VENTOLIN [Concomitant]
     Route: 055

REACTIONS (2)
  - DISSEMINATED INTRAVASCULAR COAGULATION [None]
  - SEPSIS [None]
